FAERS Safety Report 21024348 (Version 1)
Quarter: 2022Q2

REPORT INFORMATION
  Report Type: Spontaneous
  Country: CN (occurrence: CN)
  Receive Date: 20220629
  Receipt Date: 20220629
  Transmission Date: 20220720
  Serious: Yes (Life-Threatening, Hospitalization, Other)
  Sender: FDA-Public Use
  Company Number: CN-ELI_LILLY_AND_COMPANY-CN202206011387

PATIENT
  Age: 74 Year
  Sex: Female
  Weight: 88 kg

DRUGS (5)
  1. PEMETREXED [Suspect]
     Active Substance: PEMETREXED
     Indication: Lung adenocarcinoma
     Dosage: 960 MG, CYCLICAL (21 DAYS/ CYCLE)
     Route: 041
  2. PEMETREXED [Suspect]
     Active Substance: PEMETREXED
     Dosage: 0.5 G, CYCLICAL
     Route: 041
     Dates: start: 20220607, end: 20220607
  3. PEMETREXED [Suspect]
     Active Substance: PEMETREXED
     Dosage: 0.3 G, CYCLICAL
     Route: 041
     Dates: start: 20220607, end: 20220607
  4. PEMBROLIZUMAB [Suspect]
     Active Substance: PEMBROLIZUMAB
     Indication: Lung adenocarcinoma stage IV
     Dosage: 200 MG, CYCLICAL
     Route: 041
  5. CARBOPLATIN [Suspect]
     Active Substance: CARBOPLATIN
     Indication: Lung adenocarcinoma stage IV
     Dosage: 600 MG, CYCLICAL
     Route: 041

REACTIONS (4)
  - Myelosuppression [Recovering/Resolving]
  - Ecchymosis [Recovered/Resolved]
  - Obstruction [Unknown]
  - Interstitial lung disease [Unknown]

NARRATIVE: CASE EVENT DATE: 20220617
